FAERS Safety Report 23131043 (Version 5)
Quarter: 2025Q2

REPORT INFORMATION
  Report Type: Spontaneous
  Country: US (occurrence: US)
  Receive Date: 20231031
  Receipt Date: 20250616
  Transmission Date: 20250717
  Serious: No
  Sender: SANOFI AVENTIS
  Company Number: US-SA-SAC20231025000876

PATIENT
  Age: 67 Year
  Sex: Female

DRUGS (2)
  1. DUPIXENT [Suspect]
     Active Substance: DUPILUMAB
     Indication: Neurodermatitis
     Route: 058
     Dates: start: 20230826, end: 20230826
  2. DUPIXENT [Suspect]
     Active Substance: DUPILUMAB
     Indication: Eczema
     Dosage: 300 MG, QOW
     Route: 058
     Dates: start: 202309

REACTIONS (12)
  - Joint swelling [Unknown]
  - Swelling [Unknown]
  - Condition aggravated [Unknown]
  - Pruritus [Unknown]
  - Therapeutic response shortened [Unknown]
  - Arthralgia [Unknown]
  - Neurodermatitis [Unknown]
  - Pruritus [Unknown]
  - Rash [Unknown]
  - Neurodermatitis [Unknown]
  - Inappropriate schedule of product administration [Unknown]
  - Incorrect dose administered [Unknown]

NARRATIVE: CASE EVENT DATE: 20230101
